FAERS Safety Report 19116782 (Version 1)
Quarter: 2021Q2

REPORT INFORMATION
  Report Type: Spontaneous
  Country: US (occurrence: US)
  Receive Date: 20210409
  Receipt Date: 20210409
  Transmission Date: 20210717
  Serious: No
  Sender: FDA-Public Use
  Company Number: US-ALKEM LABORATORIES LIMITED-US-ALKEM-2020-03904

PATIENT
  Age: 52 Year
  Sex: Male

DRUGS (2)
  1. QUETIAPINE FUMARATE. [Suspect]
     Active Substance: QUETIAPINE FUMARATE
     Dosage: 25 MILLIGRAM, EVERY NIGHT AT BEDTIME
     Route: 065
  2. QUETIAPINE FUMARATE. [Suspect]
     Active Substance: QUETIAPINE FUMARATE
     Indication: SCHIZOAFFECTIVE DISORDER
     Dosage: 200 MILLIGRAM, QD (EVERY NIGHT AT BEDTIME)
     Route: 065

REACTIONS (5)
  - Sleep-related eating disorder [Recovered/Resolved]
  - Dyskinesia [Recovered/Resolved]
  - Parasomnia [Recovered/Resolved]
  - Somnambulism [Recovered/Resolved]
  - Amnesia [Recovered/Resolved]
